FAERS Safety Report 15437486 (Version 1)
Quarter: 2018Q3

REPORT INFORMATION
  Report Type: Spontaneous
  Country: US (occurrence: US)
  Receive Date: 20180927
  Receipt Date: 20180927
  Transmission Date: 20181010
  Serious: No
  Sender: FDA-Public Use
  Company Number: US-AMGEN-USASP2017177667

PATIENT
  Age: 71 Year
  Sex: Female
  Weight: 59.86 kg

DRUGS (23)
  1. ADRIAMYCIN [Concomitant]
     Active Substance: DOXORUBICIN HYDROCHLORIDE
     Dosage: 464 MG, UNK
     Dates: start: 20120601, end: 20120914
  2. OXYCODONE HYDROCHLORIDE. [Concomitant]
     Active Substance: OXYCODONE HYDROCHLORIDE
  3. CARISOPRODOL. [Concomitant]
     Active Substance: CARISOPRODOL
  4. IBRANCE [Concomitant]
     Active Substance: PALBOCICLIB
     Dosage: UNK
     Dates: start: 20160808
  5. TYLENOL [Concomitant]
     Active Substance: ACETAMINOPHEN
     Indication: HEADACHE
  6. ALPRAZOLAM. [Concomitant]
     Active Substance: ALPRAZOLAM
  7. FULVESTRANT. [Concomitant]
     Active Substance: FULVESTRANT
  8. CITALOPRAM HYDROBROMIDE. [Concomitant]
     Active Substance: CITALOPRAM HYDROBROMIDE
  9. PALBOCICLIB [Concomitant]
     Active Substance: PALBOCICLIB
  10. ZOFRAN [Concomitant]
     Active Substance: ONDANSETRON HYDROCHLORIDE
  11. ESOMEPRAZOLE MAGNESIUM. [Concomitant]
     Active Substance: ESOMEPRAZOLE MAGNESIUM
  12. FOSINOPRIL SODIUM. [Concomitant]
     Active Substance: FOSINOPRIL SODIUM
  13. AMITRIPTYLINE HCL [Concomitant]
     Active Substance: AMITRIPTYLINE
  14. XGEVA [Suspect]
     Active Substance: DENOSUMAB
     Indication: BREAST CANCER METASTATIC
     Dosage: UNK
     Route: 065
     Dates: start: 20120803, end: 2012
  15. FASLODEX [Suspect]
     Active Substance: FULVESTRANT
     Indication: PRODUCT USED FOR UNKNOWN INDICATION
     Dosage: UNK
     Route: 065
     Dates: start: 20160808
  16. EFFEXOR [Concomitant]
     Active Substance: VENLAFAXINE HYDROCHLORIDE
  17. MAGNESIUM [Concomitant]
     Active Substance: MAGNESIUM
  18. NORCO [Concomitant]
     Active Substance: ACETAMINOPHEN\HYDROCODONE BITARTRATE
     Indication: HEADACHE
     Dosage: UNK UNK, AS NECESSARY
  19. HYDROCODONE/ACETAMINOPHEN [Concomitant]
     Active Substance: ACETAMINOPHEN\HYDROCODONE
  20. XGEVA [Suspect]
     Active Substance: DENOSUMAB
     Dosage: UNK
     Route: 065
     Dates: start: 20140228
  21. PROMETHAZINE HCL [Concomitant]
     Active Substance: PROMETHAZINE HYDROCHLORIDE
  22. METOPROLOL AND HYDROCHLOROTHIAZIDE [Concomitant]
  23. HYDROCODONE [Concomitant]
     Active Substance: HYDROCODONE
     Indication: HEADACHE

REACTIONS (16)
  - Dyspnoea exertional [Unknown]
  - Dry skin [Unknown]
  - Palpitations [Unknown]
  - Non-cardiac chest pain [Unknown]
  - Bone pain [Unknown]
  - White blood cell disorder [Unknown]
  - Fatigue [Unknown]
  - Neutrophil count abnormal [Unknown]
  - Anxiety [Unknown]
  - Alopecia [Unknown]
  - Dry eye [Unknown]
  - Depression [Unknown]
  - Hot flush [Unknown]
  - Pain in jaw [Unknown]
  - Haemoglobin decreased [Unknown]
  - Headache [Unknown]

NARRATIVE: CASE EVENT DATE: 20120914
